FAERS Safety Report 8315069-1 (Version None)
Quarter: 2012Q2

REPORT INFORMATION
  Report Type: 
  Country: None (occurrence: None)
  Receive Date: 20120426
  Receipt Date: 20120416
  Transmission Date: 20120825
  Serious: Yes (Other)
  Sender: FDA-Public Use
  Company Number: NO-JNJFOC-20120400297

PATIENT
  Age: 25 Year
  Sex: Female

DRUGS (9)
  1. PALEXIA DEPOT [Suspect]
     Route: 048
     Dates: start: 20120301
  2. VENLAFAXINE [Interacting]
     Indication: PRODUCT USED FOR UNKNOWN INDICATION
     Route: 065
  3. PALEXIA DEPOT [Suspect]
     Indication: COMPLEX REGIONAL PAIN SYNDROME
     Dosage: 2 PER DAY
     Route: 048
     Dates: start: 20120401
  4. VENLAFAXINE [Interacting]
     Route: 065
  5. AMITRIPTYLINE HCL [Concomitant]
     Indication: PRODUCT USED FOR UNKNOWN INDICATION
     Route: 065
  6. CLONIDINE [Concomitant]
     Route: 065
  7. OXYCODONE HCL [Concomitant]
     Indication: PRODUCT USED FOR UNKNOWN INDICATION
     Route: 065
  8. LEVOMEPROMAZIN [Concomitant]
     Route: 065
  9. PREGABALIN [Concomitant]
     Route: 065

REACTIONS (2)
  - DRUG INTERACTION [None]
  - SEROTONIN SYNDROME [None]
